FAERS Safety Report 5131468-3 (Version None)
Quarter: 2006Q4

REPORT INFORMATION
  Report Type: 
  Country: None (occurrence: None)
  Receive Date: 20061020
  Receipt Date: 20061009
  Transmission Date: 20070319
  Serious: Yes (Hospitalization)
  Sender: FDA-Public Use
  Company Number: 2006SE05415

PATIENT
  Age: 20534 Day
  Sex: Male

DRUGS (6)
  1. ATENOLOL [Suspect]
     Indication: HYPERTENSION
  2. DILTIAZEM HCL [Suspect]
  3. GLYCERYL TRINITRATE [Concomitant]
  4. WARFARIN SODIUM [Concomitant]
  5. FLUVASTATIN SODIUM [Concomitant]
  6. TRANDOLAPRIL [Concomitant]

REACTIONS (6)
  - ACCIDENTAL OVERDOSE [None]
  - ATRIAL FIBRILLATION [None]
  - BACK PAIN [None]
  - BRADYCARDIA [None]
  - CHEST PAIN [None]
  - HYPOTENSION [None]
